FAERS Safety Report 19883674 (Version 1)
Quarter: 2021Q3

REPORT INFORMATION
  Report Type: Spontaneous
  Country: US (occurrence: US)
  Receive Date: 20210923
  Receipt Date: 20210923
  Transmission Date: 20211014
  Serious: No
  Sender: FDA-Public Use
  Company Number: None

PATIENT
  Age: 60 Year
  Sex: Male

DRUGS (1)
  1. HEPARIN SODIUM, PORCINE [Suspect]
     Active Substance: HEPARIN SODIUM
     Indication: PULMONARY EMBOLISM
     Dosage: ?          OTHER DOSE:500UNIT;?
     Route: 058

REACTIONS (2)
  - Heparin-induced thrombocytopenia [None]
  - Angioedema [None]

NARRATIVE: CASE EVENT DATE: 20210209
